FAERS Safety Report 11864760 (Version 1)
Quarter: 2015Q4

REPORT INFORMATION
  Report Type: Spontaneous
  Country: FR (occurrence: FR)
  Receive Date: 20151223
  Receipt Date: 20151223
  Transmission Date: 20160305
  Serious: Yes (Hospitalization)
  Sender: FDA-Public Use
  Company Number: FR-FERRINGPH-2015FE04834

PATIENT

DRUGS (4)
  1. DECAPEPTYL [Suspect]
     Active Substance: TRIPTORELIN ACETATE
     Indication: ASSISTED FERTILISATION
     Dosage: 0.1 UNK, UNK
     Route: 058
     Dates: start: 20150617, end: 20150712
  2. OVITRELLE [Suspect]
     Active Substance: CHORIOGONADOTROPIN ALFA
     Indication: ASSISTED FERTILISATION
     Dosage: UNK
     Dates: start: 20150713, end: 20150713
  3. MENOPUR [Suspect]
     Active Substance: FOLLICLE STIMULATING HORMONE BETA POLYPEPTIDE\LUTROPIN ALFA
     Indication: ASSISTED FERTILISATION
     Dosage: 225 UNK, UNK
     Dates: start: 20150701, end: 20150712
  4. DOSTINEX [Suspect]
     Active Substance: CABERGOLINE
     Indication: ASSISTED FERTILISATION

REACTIONS (2)
  - Faecaloma [Unknown]
  - Constipation [Unknown]

NARRATIVE: CASE EVENT DATE: 20150720
